FAERS Safety Report 12779144 (Version 1)
Quarter: 2016Q3

REPORT INFORMATION
  Report Type: Spontaneous
  Country: US (occurrence: US)
  Receive Date: 20160926
  Receipt Date: 20160926
  Transmission Date: 20161109
  Serious: No
  Sender: FDA-Public Use
  Company Number: US-JAZZ-2016-US-010979

PATIENT
  Sex: Female

DRUGS (42)
  1. SEROQUEL XR [Concomitant]
     Active Substance: QUETIAPINE FUMARATE
  2. NAC [Concomitant]
  3. VIVITROL [Concomitant]
     Active Substance: NALTREXONE
  4. HYDROCHLOROTHIAZIDE. [Concomitant]
     Active Substance: HYDROCHLOROTHIAZIDE
  5. ATENOLOL. [Concomitant]
     Active Substance: ATENOLOL
  6. PROTEINS [Concomitant]
  7. VITAMIN D [Concomitant]
     Active Substance: CHOLECALCIFEROL
  8. BIOTIN [Concomitant]
     Active Substance: BIOTIN
  9. ASPIRIN. [Concomitant]
     Active Substance: ASPIRIN
  10. CHANTIX [Concomitant]
     Active Substance: VARENICLINE TARTRATE
  11. COPPER [Concomitant]
     Active Substance: COPPER
  12. XYREM [Suspect]
     Active Substance: SODIUM OXYBATE
     Indication: NARCOLEPSY
     Dosage: 2.25 G, BID
     Route: 048
     Dates: start: 201506, end: 201506
  13. XYREM [Suspect]
     Active Substance: SODIUM OXYBATE
     Dosage: 4.5 G, BID
     Route: 048
     Dates: start: 201506
  14. KLONOPIN [Concomitant]
     Active Substance: CLONAZEPAM
  15. ZINC CHELATED [Concomitant]
  16. DOCUSATE SODIUM. [Concomitant]
     Active Substance: DOCUSATE SODIUM
  17. ANTABUSE [Concomitant]
     Active Substance: DISULFIRAM
  18. NALTREXONE [Concomitant]
     Active Substance: NALTREXONE
  19. METHOCARBAMOL. [Concomitant]
     Active Substance: METHOCARBAMOL
  20. BENZTROPINE MESILATE [Concomitant]
     Active Substance: BENZTROPINE MESYLATE
  21. XYREM [Suspect]
     Active Substance: SODIUM OXYBATE
     Indication: CATAPLEXY
     Dosage: DOSE ADJUSTMENTS
     Route: 048
     Dates: start: 201506, end: 201506
  22. CLONAZEPAM. [Concomitant]
     Active Substance: CLONAZEPAM
  23. LISINOPRIL. [Concomitant]
     Active Substance: LISINOPRIL
  24. TIGAN [Concomitant]
     Active Substance: TRIMETHOBENZAMIDE HYDROCHLORIDE
  25. GABAPENTIN. [Concomitant]
     Active Substance: GABAPENTIN
  26. CYANOCOBALAMIN. [Concomitant]
     Active Substance: CYANOCOBALAMIN
  27. ALBUTEROL SULFATE HFA [Concomitant]
     Active Substance: ALBUTEROL SULFATE
  28. LEXAPRO [Concomitant]
     Active Substance: ESCITALOPRAM OXALATE
  29. DEPAKOTE ER [Concomitant]
     Active Substance: DIVALPROEX SODIUM
  30. LISINOPRIL/HCTZ [Concomitant]
     Active Substance: HYDROCHLOROTHIAZIDE\LISINOPRIL
  31. POTASSIUM CL ER [Concomitant]
     Active Substance: POTASSIUM CHLORIDE
  32. VITAMIN B COMPLEX [Concomitant]
     Active Substance: CYANOCOBALAMIN\DEXPANTHENOL\NIACINAMIDE\PYRIDOXINE HYDROCHLORIDE\RIBOFLAVIN 5^-PHOSPHATE SODIUM\THIAMINE HYDROCHLORIDE\VITAMIN B COMPLEX
  33. HYDROXYZINE HCL [Concomitant]
     Active Substance: HYDROXYZINE HYDROCHLORIDE
  34. PROBIOTIC-DIGESTIVE ENZYMES [Concomitant]
  35. METHYLCOBALAMIN. [Concomitant]
     Active Substance: METHYLCOBALAMIN
  36. MELATONIN [Concomitant]
     Active Substance: MELATONIN
  37. NAPROXEN DR [Concomitant]
  38. NUVIGIL [Concomitant]
     Active Substance: ARMODAFINIL
  39. MULTIVITAMIN [Concomitant]
     Active Substance: VITAMINS
  40. SEROQUEL [Concomitant]
     Active Substance: QUETIAPINE FUMARATE
  41. VITAMIN C [Concomitant]
     Active Substance: ASCORBIC ACID
  42. VITAMIN E [Concomitant]
     Active Substance: .ALPHA.-TOCOPHEROL

REACTIONS (1)
  - Asthma [Recovered/Resolved]
